FAERS Safety Report 24940719 (Version 1)
Quarter: 2025Q1

REPORT INFORMATION
  Report Type: Spontaneous
  Country: US (occurrence: US)
  Receive Date: 20250207
  Receipt Date: 20250207
  Transmission Date: 20250409
  Serious: Yes (Life-Threatening, Hospitalization)
  Sender: STRIDES
  Company Number: US-STRIDES ARCOLAB LIMITED-2024SP014147

PATIENT
  Age: 88 Year
  Sex: Female

DRUGS (2)
  1. PREGABALIN [Suspect]
     Active Substance: PREGABALIN
     Indication: Neuralgia
     Route: 048
  2. PREGABALIN [Suspect]
     Active Substance: PREGABALIN
     Indication: Pain in extremity
     Route: 048

REACTIONS (2)
  - Anaphylactic reaction [Recovered/Resolved]
  - Cardiac failure congestive [Recovered/Resolved]
